FAERS Safety Report 16113094 (Version 2)
Quarter: 2020Q3

REPORT INFORMATION
  Report Type: Spontaneous
  Country: FR (occurrence: FR)
  Receive Date: 20190325
  Receipt Date: 20200917
  Transmission Date: 20201102
  Serious: Yes (Other)
  Sender: FDA-Public Use
  Company Number: FR-SA-2019SA078622

PATIENT

DRUGS (2)
  1. METRONIDAZOLE. [Suspect]
     Active Substance: METRONIDAZOLE
     Indication: BRAIN EMPYEMA
     Dosage: 500 MG, Q8H
     Route: 042
     Dates: start: 20190110
  2. LOVENOX [Suspect]
     Active Substance: ENOXAPARIN SODIUM
     Indication: CIRCULATING ANTICOAGULANT
     Dosage: 4000 IU, Q12H
     Route: 058
     Dates: start: 20190111

REACTIONS (1)
  - Neutropenia [Recovered/Resolved]

NARRATIVE: CASE EVENT DATE: 20190204
